FAERS Safety Report 18974201 (Version 3)
Quarter: 2022Q2

REPORT INFORMATION
  Report Type: Report from Study
  Country: US (occurrence: US)
  Receive Date: 20210305
  Receipt Date: 20220531
  Transmission Date: 20220721
  Serious: Yes (Other)
  Sender: FDA-Public Use
  Company Number: US-NOVARTISTESTPH-NVSC2021US049427

PATIENT
  Sex: Male

DRUGS (1)
  1. ZYKADIA [Suspect]
     Active Substance: CERITINIB
     Indication: Neoplasm malignant
     Dosage: 150 MG, QD
     Route: 048

REACTIONS (3)
  - Lung neoplasm malignant [Unknown]
  - Fatigue [Unknown]
  - Product availability issue [Unknown]
